FAERS Safety Report 4576830-2 (Version None)
Quarter: 2005Q1

REPORT INFORMATION
  Report Type: 
  Country: None (occurrence: None)
  Receive Date: 20050210
  Receipt Date: 20050127
  Transmission Date: 20050727
  Serious: Yes (Hospitalization)
  Sender: FDA-Public Use
  Company Number: SEWYE379528JAN05

PATIENT

DRUGS (4)
  1. ENBREL [Suspect]
     Indication: DRUG USE FOR UNKNOWN INDICATION
  2. ACETAMINOPHEN [Concomitant]
  3. PREDNISONE [Concomitant]
  4. PILOCARPINE [Concomitant]

REACTIONS (1)
  - POLYNEUROPATHY [None]
